FAERS Safety Report 10453315 (Version 1)
Quarter: 2014Q3

REPORT INFORMATION
  Report Type: Spontaneous
  Country: BE (occurrence: BE)
  Receive Date: 20140915
  Receipt Date: 20140915
  Transmission Date: 20150326
  Serious: Yes (Death, Hospitalization)
  Sender: FDA-Public Use
  Company Number: PHHY2014BE117146

PATIENT
  Age: 44 Year
  Sex: Male

DRUGS (7)
  1. ZIDOVUDINE. [Suspect]
     Active Substance: ZIDOVUDINE
     Indication: HIV INFECTION
  2. RITONAVIR [Suspect]
     Active Substance: RITONAVIR
     Indication: HIV INFECTION
  3. ABACAVIR [Suspect]
     Active Substance: ABACAVIR
     Indication: HIV INFECTION
  4. LAMIVUDINE. [Suspect]
     Active Substance: LAMIVUDINE
     Indication: HIV INFECTION
  5. METHYLPREDNISOLONE [Suspect]
     Active Substance: METHYLPREDNISOLONE
     Dosage: 32 MG A DAY
  6. SAQUINAVIR [Suspect]
     Active Substance: SAQUINAVIR
     Indication: HIV INFECTION
  7. METHYLPREDNISOLONE [Suspect]
     Active Substance: METHYLPREDNISOLONE
     Dosage: 48 MG A DAY

REACTIONS (14)
  - Cytomegalovirus infection [Unknown]
  - Dyspnoea [Unknown]
  - Fatigue [Unknown]
  - Bronchopneumonia [Fatal]
  - Decreased appetite [Unknown]
  - Pulmonary oedema [Fatal]
  - Central nervous system lesion [Unknown]
  - Mycobacterium avium complex infection [Unknown]
  - Bone abscess [Recovering/Resolving]
  - Aspergillus infection [Fatal]
  - Brain oedema [Fatal]
  - Progressive multifocal leukoencephalopathy [Unknown]
  - Pyrexia [Unknown]
  - Immune reconstitution inflammatory syndrome [Unknown]
